FAERS Safety Report 6553919-X (Version None)
Quarter: 2010Q1

REPORT INFORMATION
  Report Type: 
  Country: None (occurrence: None)
  Receive Date: 20100127
  Receipt Date: 20100115
  Transmission Date: 20100710
  Serious: Yes (Life-Threatening, Hospitalization, Other)
  Sender: FDA-Public Use
  Company Number: JP-PFIZER INC-2009282054

PATIENT
  Age: 46 Year
  Sex: Female
  Weight: 44 kg

DRUGS (11)
  1. FARMORUBICIN [Suspect]
     Indication: BREAST CANCER
     Dosage: 140 MG, INJ
     Route: 042
     Dates: start: 20090219, end: 20090219
  2. ENDOXAN [Concomitant]
     Indication: BREAST CANCER
     Dosage: 800 MG/DAY ONCE DAILY
     Dates: start: 20090219, end: 20090219
  3. TAXOTERE [Concomitant]
     Indication: BREAST CANCER
     Dosage: UNK
  4. TRASTUZUMAB [Concomitant]
     Indication: BREAST CANCER
     Dosage: UNK
     Route: 042
  5. DECADRON [Concomitant]
     Indication: BREAST CANCER
     Dosage: UNK
     Route: 042
  6. GRANISETRON [Concomitant]
     Indication: BREAST CANCER
     Dosage: UNK
     Route: 042
  7. GASTER [Concomitant]
     Indication: BREAST CANCER
     Dosage: UNK
     Route: 048
     Dates: start: 20090107
  8. GANATON [Concomitant]
     Dosage: UNK
     Route: 048
     Dates: start: 20090219
  9. MEDICON [Concomitant]
     Dosage: UNK
     Route: 048
     Dates: start: 20090226, end: 20090304
  10. MUCOSOLVAN [Concomitant]
     Dosage: UNK
     Route: 048
     Dates: start: 20090226, end: 20090304
  11. ASTOMIN [Concomitant]
     Dosage: UNK
     Dates: start: 20090226, end: 20090304

REACTIONS (1)
  - PNEUMOCYSTIS JIROVECI PNEUMONIA [None]
